FAERS Safety Report 12214145 (Version 1)
Quarter: 2016Q1

REPORT INFORMATION
  Report Type: Spontaneous
  Country: GB (occurrence: GB)
  Receive Date: 20160328
  Receipt Date: 20160328
  Transmission Date: 20160526
  Serious: No
  Sender: FDA-Public Use
  Company Number: GB-JNJFOC-20160319955

PATIENT
  Age: 55 Year
  Sex: Female

DRUGS (1)
  1. DUROGESIC DTRANS [Suspect]
     Active Substance: FENTANYL
     Indication: PAIN
     Dosage: 25 UG/HR AND 12.5 UG/HR
     Route: 062

REACTIONS (3)
  - Application site pruritus [Unknown]
  - Off label use [Unknown]
  - Drug administration error [Unknown]
